FAERS Safety Report 7417566-X (Version None)
Quarter: 2011Q2

REPORT INFORMATION
  Report Type: 
  Country: None (occurrence: None)
  Receive Date: 20110415
  Receipt Date: 20110406
  Transmission Date: 20111010
  Serious: Yes (Hospitalization)
  Sender: FDA-Public Use
  Company Number: DE-SANOFI-AVENTIS-2011SA020812

PATIENT
  Age: 57 Year
  Sex: Male

DRUGS (6)
  1. MAGNESIUM [Concomitant]
     Route: 065
  2. ETHYL FUMARATE ZINC AND DIMETHYL FUMARATE AND ETHYL FUMARATE MAGNESIUM [Concomitant]
     Route: 065
  3. DIGIMERCK [Concomitant]
     Route: 065
  4. PANTOZOL [Concomitant]
     Route: 065
  5. TAVANIC [Concomitant]
     Indication: INFECTION
     Route: 065
     Dates: end: 20110403
  6. MULTAQ [Suspect]
     Indication: ARRHYTHMIA
     Route: 065
     Dates: start: 20100101, end: 20110404

REACTIONS (4)
  - LUNG INFILTRATION [None]
  - ERYTHEMA [None]
  - INTERSTITIAL LUNG DISEASE [None]
  - PSORIASIS [None]
